FAERS Safety Report 26026921 (Version 2)
Quarter: 2025Q4

REPORT INFORMATION
  Report Type: Spontaneous
  Country: DO (occurrence: DO)
  Receive Date: 20251111
  Receipt Date: 20251202
  Transmission Date: 20260119
  Serious: No
  Sender: PFIZER
  Company Number: DO-PFIZER INC-PV202500128616

PATIENT
  Sex: Female

DRUGS (1)
  1. GENOTROPIN [Suspect]
     Active Substance: SOMATROPIN

REACTIONS (1)
  - Device mechanical issue [Unknown]
